FAERS Safety Report 11411130 (Version 1)
Quarter: 2015Q3

REPORT INFORMATION
  Report Type: Spontaneous
  Country: US (occurrence: US)
  Receive Date: 20150821
  Receipt Date: 20150821
  Transmission Date: 20151125
  Serious: No
  Sender: FDA-Public Use
  Company Number: US-ELI_LILLY_AND_COMPANY-US201002003650

PATIENT
  Age: 91 Year
  Sex: Female
  Weight: 62.59 kg

DRUGS (3)
  1. HUMULIN N [Suspect]
     Active Substance: INSULIN HUMAN
     Indication: DIABETES MELLITUS
     Dosage: 40 U, DAILY (1/D)
     Dates: start: 20100211
  2. GLIMEPIRIDE. [Concomitant]
     Active Substance: GLIMEPIRIDE
     Dosage: 2 MG, EACH EVENING
     Dates: start: 2008
  3. GLIMEPIRIDE. [Concomitant]
     Active Substance: GLIMEPIRIDE
     Dosage: 3 MG, EACH MORNING
     Dates: start: 2008

REACTIONS (2)
  - Incorrect dose administered [Unknown]
  - Malabsorption from injection site [Unknown]

NARRATIVE: CASE EVENT DATE: 20100211
